FAERS Safety Report 6904202-1 (Version None)
Quarter: 2010Q3

REPORT INFORMATION
  Report Type: 
  Country: None (occurrence: None)
  Receive Date: 20100804
  Receipt Date: 20090330
  Transmission Date: 20110219
  Serious: No
  Sender: FDA-Public Use
  Company Number: US-PFIZER INC-2009174779

PATIENT
  Sex: Female

DRUGS (2)
  1. LYRICA [Suspect]
     Dosage: UNK
     Dates: start: 20090213
  2. TYLENOL [Suspect]
     Indication: PAIN
     Dosage: UNK

REACTIONS (6)
  - DRUG INEFFECTIVE [None]
  - FEAR OF FALLING [None]
  - FEELING ABNORMAL [None]
  - GAIT DISTURBANCE [None]
  - HEADACHE [None]
  - VISION BLURRED [None]
